FAERS Safety Report 21949472 (Version 1)
Quarter: 2023Q1

REPORT INFORMATION
  Report Type: Spontaneous
  Country: US (occurrence: None)
  Receive Date: 20230202
  Receipt Date: 20230202
  Transmission Date: 20230418
  Serious: No
  Sender: FDA-Public Use
  Company Number: None

PATIENT
  Sex: Female
  Weight: 74.39 kg

DRUGS (4)
  1. IBRANCE [Suspect]
     Active Substance: PALBOCICLIB
     Indication: Breast cancer female
     Dosage: FREQUENCY : DAILY;?
     Route: 048
     Dates: start: 202301, end: 202302
  2. FULVESTRANT [Concomitant]
  3. PANTOPRAZOLE [Concomitant]
  4. SYNTHROID [Concomitant]

REACTIONS (3)
  - Dehydration [None]
  - Vomiting [None]
  - Diarrhoea [None]
